FAERS Safety Report 10452119 (Version 3)
Quarter: 2014Q4

REPORT INFORMATION
  Report Type: Spontaneous
  Country: US (occurrence: None)
  Receive Date: 20140910
  Receipt Date: 20141017
  Transmission Date: 20150528
  Serious: Yes (Hospitalization, Disabling, Other)
  Sender: FDA-Public Use
  Company Number: CC 14-1269

PATIENT
  Age: 86 Year
  Sex: Male

DRUGS (2)
  1. METRONIDAZOLE TOPICAL GEL [Suspect]
     Active Substance: METRONIDAZOLE
     Indication: ROSACEA
     Dosage: UNKNOWN
     Dates: start: 201408
  2. SALT EYE DROPS [Concomitant]

REACTIONS (8)
  - Scratch [None]
  - Eye pain [None]
  - Accidental exposure to product [None]
  - Blindness [None]
  - Eye discharge [None]
  - Eye injury [None]
  - Exposure via direct contact [None]
  - Corneal oedema [None]

NARRATIVE: CASE EVENT DATE: 20140804
